FAERS Safety Report 6249560-9 (Version None)
Quarter: 2009Q2

REPORT INFORMATION
  Report Type: 
  Country: None (occurrence: None)
  Receive Date: 20090625
  Receipt Date: 20090625
  Transmission Date: 20091009
  Serious: Yes (Hospitalization)
  Sender: FDA-Public Use
  Company Number: None

PATIENT
  Sex: Female

DRUGS (11)
  1. GEMCITABINE [Suspect]
     Indication: PANCREATIC CARCINOMA
     Dosage: 1000MG/M2 D1, D8, D15 IV DRIP
     Route: 041
     Dates: start: 20070308, end: 20070411
  2. MEGACE [Concomitant]
  3. ZOFRAN [Concomitant]
  4. FLOVENT [Concomitant]
  5. ALBUTEROL [Concomitant]
  6. PROTONIX [Concomitant]
  7. REGLAN [Concomitant]
  8. LIPITOR [Concomitant]
  9. ALDACTONE [Concomitant]
  10. DYAZIDE [Concomitant]
  11. CYMBALTA [Concomitant]

REACTIONS (7)
  - COLITIS [None]
  - GASTRIC VARICES [None]
  - GASTRITIS [None]
  - HAEMATEMESIS [None]
  - MALIGNANT NEOPLASM PROGRESSION [None]
  - OESOPHAGITIS [None]
  - PANCREATIC CARCINOMA METASTATIC [None]
